FAERS Safety Report 9275413 (Version 1)
Quarter: 2013Q2

REPORT INFORMATION
  Report Type: Spontaneous
  Country: CN (occurrence: CN)
  Receive Date: 20130507
  Receipt Date: 20130507
  Transmission Date: 20140414
  Serious: Yes (Other)
  Sender: FDA-Public Use
  Company Number: CN-ABBOTT-13X-035-1085141-00

PATIENT
  Age: 33 Year
  Sex: Male

DRUGS (2)
  1. DEPAKINE CHRONO [Suspect]
     Indication: EPILEPSY
     Dosage: EXTENDED RELEASE
     Route: 048
     Dates: start: 201202
  2. DEPAKINE CHRONO [Suspect]
     Dosage: EXTENDED RELEASE
     Route: 048

REACTIONS (6)
  - Drug dose omission [Unknown]
  - Epilepsy [Recovered/Resolved]
  - Loss of consciousness [Recovered/Resolved]
  - Trismus [Recovered/Resolved]
  - Foaming at mouth [Recovered/Resolved]
  - Headache [Recovered/Resolved]
